FAERS Safety Report 9788061 (Version 1)
Quarter: 2013Q4

REPORT INFORMATION
  Report Type: Spontaneous
  Country: US (occurrence: None)
  Receive Date: 20131227
  Receipt Date: 20131227
  Transmission Date: 20140711
  Serious: Yes (Hospitalization)
  Sender: FDA-Public Use
  Company Number: None

PATIENT
  Age: 53 Year
  Sex: Male
  Weight: 136 kg

DRUGS (11)
  1. VANCOMYCIN [Suspect]
     Indication: PNEUMONIA
     Dosage: Q12HR X 3 DOSES IVPB
  2. PANTOPRAZOLE [Concomitant]
  3. MORPHINE [Concomitant]
  4. HYDRALAZINE [Concomitant]
  5. XANAX [Concomitant]
  6. VIT E+C [Concomitant]
  7. FISH OIL [Concomitant]
  8. TRAZODONE [Concomitant]
  9. METOPROLOL [Concomitant]
  10. HYDROCODONE/APAP [Concomitant]
  11. HCTZ/LOSARTAN [Concomitant]

REACTIONS (4)
  - Renal failure acute [None]
  - Renal ischaemia [None]
  - Device occlusion [None]
  - Post procedural haemorrhage [None]
